FAERS Safety Report 5948866-8 (Version None)
Quarter: 2008Q4

REPORT INFORMATION
  Report Type: 
  Country: None (occurrence: None)
  Receive Date: 20081111
  Receipt Date: 20081106
  Transmission Date: 20090506
  Serious: Yes (Life-Threatening, Hospitalization, Other)
  Sender: FDA-Public Use
  Company Number: AU-ABBOTT-08P-008-0486173-00

PATIENT
  Sex: Female
  Weight: 70 kg

DRUGS (5)
  1. CLARITHROMYCIN [Suspect]
     Indication: DRUG USE FOR UNKNOWN INDICATION
     Route: 048
  2. ANASTROZOLE [Concomitant]
     Indication: BREAST CANCER
     Route: 048
  3. ASTRIX 100 [Concomitant]
     Indication: DRUG USE FOR UNKNOWN INDICATION
     Route: 048
  4. ATORVASTATIN CALCIUM [Concomitant]
     Indication: METABOLIC DISORDER
     Route: 048
  5. SOTALOL HCL [Concomitant]
     Indication: ARRHYTHMIA
     Route: 048

REACTIONS (4)
  - ABDOMINAL PAIN UPPER [None]
  - HEPATOTOXICITY [None]
  - LIVER INJURY [None]
  - POST PROCEDURAL HAEMORRHAGE [None]
